FAERS Safety Report 9056273 (Version 2)
Quarter: 2013Q1

REPORT INFORMATION
  Report Type: Spontaneous
  Country: FR (occurrence: FR)
  Receive Date: 20130205
  Receipt Date: 20130219
  Transmission Date: 20140127
  Serious: Yes (Death, Hospitalization, Other)
  Sender: FDA-Public Use
  Company Number: FR-009507513-1301FRA013301

PATIENT
  Age: 22 None
  Sex: Female

DRUGS (2)
  1. VARNOLINE [Suspect]
     Indication: CONTRACEPTION
     Dosage: 1 DF, UNK
     Route: 048
     Dates: start: 201208
  2. NOCERTONE [Suspect]
     Indication: MIGRAINE
     Dosage: UNK
     Route: 048

REACTIONS (2)
  - Cardio-respiratory arrest [Fatal]
  - Pulmonary embolism [Fatal]
